FAERS Safety Report 9224433 (Version 1)
Quarter: 2013Q2

REPORT INFORMATION
  Report Type: Spontaneous
  Country: US (occurrence: None)
  Receive Date: 20130409
  Receipt Date: 20130409
  Transmission Date: 20140414
  Serious: Yes (Hospitalization)
  Sender: FDA-Public Use
  Company Number: None

PATIENT
  Age: 39 Year
  Sex: Male
  Weight: 70.7 kg

DRUGS (8)
  1. STRIBILD 150-150-200-300 MG [Suspect]
     Indication: HIV INFECTION
     Dosage: 1 PILL DAILY PO
     Route: 048
     Dates: start: 20130308, end: 20130401
  2. TAMIFLU 30 MG [Concomitant]
  3. TAMIFLU 75 MG [Concomitant]
  4. CYCLOBENZAPRINE [Concomitant]
  5. IBUPROFEN [Concomitant]
  6. SUMATRIPTAN [Concomitant]
  7. BACTRIM DS [Concomitant]
  8. ZOLPIDEM [Concomitant]

REACTIONS (7)
  - Lactic acidosis [None]
  - Pain [None]
  - Hyperhidrosis [None]
  - Headache [None]
  - Dizziness [None]
  - Cough [None]
  - Influenza [None]
